FAERS Safety Report 9697820 (Version 2)
Quarter: 2013Q4

REPORT INFORMATION
  Report Type: Spontaneous
  Country: US (occurrence: US)
  Receive Date: 20131120
  Receipt Date: 20131227
  Transmission Date: 20140711
  Serious: No
  Sender: FDA-Public Use
  Company Number: US-PFIZER INC-2013330747

PATIENT
  Age: 74 Year
  Sex: Female
  Weight: 56.69 kg

DRUGS (1)
  1. PERCOCET [Suspect]
     Indication: PAIN
     Dosage: UNK, AS NEEDED (QHS PRN)
     Route: 048

REACTIONS (1)
  - Depression [Unknown]
